FAERS Safety Report 4491797-3 (Version None)
Quarter: 2004Q4

REPORT INFORMATION
  Report Type: 
  Country: None (occurrence: None)
  Receive Date: 20041101
  Receipt Date: 20041021
  Transmission Date: 20050328
  Serious: Yes (Other)
  Sender: FDA-Public Use
  Company Number: CO-2004-032000

PATIENT
  Age: 25 Year
  Sex: Female
  Weight: 43 kg

DRUGS (4)
  1. ETHINYL ESTRADIOL AND LEVONORGESTREL [Suspect]
     Dosage: 1 TAB (S), 1X/DAY, ORAL
     Route: 048
     Dates: start: 20001101, end: 20040908
  2. AMPICILLIN [Concomitant]
  3. OMEPRAZOLE [Concomitant]
  4. PENICILLIN [Concomitant]

REACTIONS (4)
  - ABORTION THREATENED [None]
  - DIARRHOEA [None]
  - PREGNANCY ON ORAL CONTRACEPTIVE [None]
  - SELF-MEDICATION [None]
